FAERS Safety Report 7919517-8 (Version None)
Quarter: 2011Q4

REPORT INFORMATION
  Report Type: 
  Country: None (occurrence: None)
  Receive Date: 20111116
  Receipt Date: 20111116
  Transmission Date: 20120403
  Serious: Yes (Hospitalization)
  Sender: FDA-Public Use
  Company Number: None

PATIENT
  Sex: Female

DRUGS (1)
  1. VICTRELIS [Suspect]
     Dosage: 800MG TID PO
     Route: 048
     Dates: start: 20110920, end: 20111105

REACTIONS (4)
  - APHAGIA [None]
  - IMMUNE SYSTEM DISORDER [None]
  - INSOMNIA [None]
  - GASTROINTESTINAL DISORDER [None]
